FAERS Safety Report 10064989 (Version 1)
Quarter: 2014Q2

REPORT INFORMATION
  Report Type: Spontaneous
  Country: US (occurrence: US)
  Receive Date: 20140408
  Receipt Date: 20140408
  Transmission Date: 20141212
  Serious: Yes (Death)
  Sender: FDA-Public Use
  Company Number: US-CELGENEUS-163-POMAL-14040565

PATIENT
  Sex: Female

DRUGS (1)
  1. POMALYST [Suspect]
     Indication: AMYLOIDOSIS
     Dosage: 2 MILLIGRAM
     Route: 048
     Dates: start: 201312

REACTIONS (1)
  - Death [Fatal]
